FAERS Safety Report 5491912-9 (Version None)
Quarter: 2007Q4

REPORT INFORMATION
  Report Type: 
  Country: None (occurrence: None)
  Receive Date: 20071018
  Receipt Date: 20071018
  Transmission Date: 20080405
  Serious: Yes (Life-Threatening)
  Sender: FDA-Public Use
  Company Number: None

PATIENT
  Sex: Female
  Weight: 74.8435 kg

DRUGS (2)
  1. BYETTA [Suspect]
     Indication: DIABETIC KETOACIDOSIS
  2. BYETTA [Suspect]
     Indication: PANCREATITIS

REACTIONS (5)
  - ANTI-GAD ANTIBODY POSITIVE [None]
  - BLOOD GLUCOSE INCREASED [None]
  - DYSPNOEA [None]
  - INSULIN C-PEPTIDE ABNORMAL [None]
  - PANCREATITIS [None]
